FAERS Safety Report 12568531 (Version 1)
Quarter: 2016Q3

REPORT INFORMATION
  Report Type: Spontaneous
  Country: JP (occurrence: JP)
  Receive Date: 20160719
  Receipt Date: 20160719
  Transmission Date: 20161109
  Serious: Yes (Hospitalization)
  Sender: FDA-Public Use
  Company Number: JP-AMGEN-JPNSP2016092406

PATIENT
  Age: 67 Year
  Sex: Female

DRUGS (2)
  1. TAMOXIFEN [Concomitant]
     Active Substance: TAMOXIFEN
     Dosage: UNK
  2. RANMARK [Suspect]
     Active Substance: DENOSUMAB
     Indication: METASTASES TO LYMPH NODES
     Dosage: 120 MG, UNK
     Route: 058

REACTIONS (4)
  - Renal haematoma [Unknown]
  - Haematuria [Recovering/Resolving]
  - Renal arteriovenous malformation [Unknown]
  - Urinary bladder haemorrhage [Unknown]
